FAERS Safety Report 7125826-5 (Version None)
Quarter: 2010Q4

REPORT INFORMATION
  Report Type: 
  Country: None (occurrence: None)
  Receive Date: 20101129
  Receipt Date: 20101125
  Transmission Date: 20110411
  Serious: Yes (Other)
  Sender: FDA-Public Use
  Company Number: Z0005857A

PATIENT
  Sex: Female
  Weight: 61 kg

DRUGS (4)
  1. LAPATINIB [Suspect]
     Indication: BREAST CANCER METASTATIC
     Dosage: 1250MG PER DAY
     Route: 048
     Dates: start: 20100615
  2. CAPECITABINE [Suspect]
     Indication: BREAST CANCER METASTATIC
     Dosage: 2000MGM2 CYCLIC
     Route: 048
     Dates: start: 20100615
  3. LETROX [Concomitant]
     Dosage: 50MG PER DAY
     Route: 048
     Dates: start: 20070101
  4. NIMESIL [Concomitant]
     Indication: PROCTALGIA
     Dosage: 100MG UNKNOWN
     Route: 048
     Dates: start: 20100615, end: 20100601

REACTIONS (1)
  - NEUTROPENIA [None]
